FAERS Safety Report 8922549 (Version 2)
Quarter: 2012Q4

REPORT INFORMATION
  Report Type: 
  Country: CN (occurrence: CN)
  Receive Date: 20121123
  Receipt Date: 20121207
  Transmission Date: 20130627
  Serious: Yes (Death)
  Sender: FDA-Public Use
  Company Number: CN-ROCHE-1159471

PATIENT
  Age: 2 Year
  Sex: Female

DRUGS (2)
  1. CEFTRIAXONE SODIUM [Suspect]
     Indication: UPPER RESPIRATORY TRACT INFECTION
     Dosage: dose unknown
     Route: 065
  2. CEFTRIAXONE SODIUM [Suspect]
     Indication: PYREXIA

REACTIONS (1)
  - Respiratory failure [Fatal]
